FAERS Safety Report 12189271 (Version 2)
Quarter: 2016Q1

REPORT INFORMATION
  Report Type: Spontaneous
  Country: DE (occurrence: DE)
  Receive Date: 20160317
  Receipt Date: 20160324
  Transmission Date: 20160526
  Serious: Yes (Hospitalization, Other)
  Sender: FDA-Public Use
  Company Number: DE-SEATTLE GENETICS-2016SGN00272

PATIENT
  Age: 74 Year
  Sex: Male

DRUGS (4)
  1. ADCETRIS [Suspect]
     Active Substance: BRENTUXIMAB VEDOTIN
     Indication: ANAPLASTIC LARGE CELL LYMPHOMA T- AND NULL-CELL TYPES
     Dosage: 150 MG, UNK
     Route: 042
     Dates: start: 20151002, end: 20160201
  2. FINASTERIDE. [Concomitant]
     Active Substance: FINASTERIDE
     Dosage: 5 MG, QD
  3. RAMIPRIL. [Concomitant]
     Active Substance: RAMIPRIL
     Route: 065
  4. RAMIPRIL. [Concomitant]
     Active Substance: RAMIPRIL
     Indication: HYPERTENSION
     Dosage: 5 MG, QD

REACTIONS (12)
  - Pruritus generalised [Not Recovered/Not Resolved]
  - Dizziness [Unknown]
  - Pain [Unknown]
  - Dysaesthesia [Recovering/Resolving]
  - Asthenia [Unknown]
  - Epididymitis [Recovering/Resolving]
  - Red blood cell count decreased [Unknown]
  - Pain in extremity [Recovered/Resolved]
  - Epididymitis [Unknown]
  - Eczema nummular [Recovered/Resolved]
  - Polyneuropathy [Recovering/Resolving]
  - Rash generalised [Unknown]

NARRATIVE: CASE EVENT DATE: 201502
